FAERS Safety Report 15075080 (Version 1)
Quarter: 2018Q2

REPORT INFORMATION
  Report Type: Spontaneous
  Country: US (occurrence: US)
  Receive Date: 20180627
  Receipt Date: 20180627
  Transmission Date: 20180711
  Serious: Yes (Hospitalization, Other)
  Sender: FDA-Public Use
  Company Number: US-SAOL THERAPEUTICS-2017SAO03439

PATIENT
  Age: 45 Year
  Weight: 102.95 kg

DRUGS (6)
  1. LIORESAL [Suspect]
     Active Substance: BACLOFEN
     Dosage: 414.5 ?G, \DAY - MAX
     Route: 037
  2. BUPIVACAINE. [Suspect]
     Active Substance: BUPIVACAINE
     Dosage: 3.36 MG, \DAY
     Route: 037
  3. BUPIVACAINE. [Suspect]
     Active Substance: BUPIVACAINE
     Dosage: 4.145 MG, \DAY - MAX
     Route: 037
  4. MORPHINE [Suspect]
     Active Substance: MORPHINE
     Dosage: 252.29 ?G, \DAY
     Route: 037
  5. MORPHINE [Suspect]
     Active Substance: MORPHINE
     Dosage: 310.9 ?G, \DAY - MAX
     Route: 037
  6. LIORESAL [Suspect]
     Active Substance: BACLOFEN
     Indication: MUSCLE SPASTICITY
     Dosage: 336.4 ?G, \DAY
     Route: 037

REACTIONS (4)
  - Dysarthria [Unknown]
  - Muscle spasticity [Unknown]
  - Device failure [Unknown]
  - Malaise [Unknown]

NARRATIVE: CASE EVENT DATE: 20171202
